FAERS Safety Report 7582324-2 (Version None)
Quarter: 2011Q2

REPORT INFORMATION
  Report Type: 
  Country: None (occurrence: None)
  Receive Date: 20110630
  Receipt Date: 20110622
  Transmission Date: 20111010
  Serious: Yes (Other)
  Sender: FDA-Public Use
  Company Number: IT-JNJFOC-20110609937

PATIENT
  Sex: Female

DRUGS (3)
  1. TRUVADA [Concomitant]
     Indication: HIV INFECTION
  2. NORVIR [Concomitant]
     Indication: HIV INFECTION
     Dates: start: 20110511, end: 20110518
  3. PREZISTA [Suspect]
     Indication: HIV INFECTION
     Dates: start: 20110511, end: 20110518

REACTIONS (1)
  - GENERALISED ERYTHEMA [None]
